FAERS Safety Report 18490580 (Version 3)
Quarter: 2023Q4

REPORT INFORMATION
  Report Type: Spontaneous
  Country: FR (occurrence: FR)
  Receive Date: 20201111
  Receipt Date: 20231009
  Transmission Date: 20240110
  Serious: Yes (Death, Other)
  Sender: FDA-Public Use
  Company Number: None

PATIENT
  Age: 73 Year
  Sex: Male
  Weight: 85 kg

DRUGS (8)
  1. MEROPENEM [Suspect]
     Active Substance: MEROPENEM
     Indication: Lung disorder
     Dosage: UNK
     Route: 042
     Dates: start: 20200918, end: 20200925
  2. LANSOPRAZOLE [Suspect]
     Active Substance: LANSOPRAZOLE
     Dosage: UNK
     Route: 065
     Dates: start: 20200828, end: 20200927
  3. FLUCONAZOLE [Suspect]
     Active Substance: FLUCONAZOLE
     Dosage: UNK
     Route: 065
     Dates: start: 20200922, end: 20200927
  4. LINEZOLID [Suspect]
     Active Substance: LINEZOLID
     Indication: Lung disorder
     Dosage: UNK
     Route: 042
     Dates: start: 20200908, end: 20200912
  5. BACTRIM [Suspect]
     Active Substance: SULFAMETHOXAZOLE\TRIMETHOPRIM
     Indication: Lung disorder
     Dosage: UNK
     Dates: start: 20200918, end: 20200927
  6. CEFEPIME [Suspect]
     Active Substance: CEFEPIME HYDROCHLORIDE
     Indication: Lung disorder
     Dosage: UNK
     Route: 042
     Dates: start: 20200908, end: 20200918
  7. LEVOFLOXACIN [Suspect]
     Active Substance: LEVOFLOXACIN
     Indication: Lung disorder
     Dosage: UNK
     Route: 065
     Dates: start: 20200912, end: 20200918
  8. IOBITRIDOL [Suspect]
     Active Substance: IOBITRIDOL
     Indication: Computerised tomogram
     Dosage: UNK
     Route: 065

REACTIONS (1)
  - Drug reaction with eosinophilia and systemic symptoms [Fatal]

NARRATIVE: CASE EVENT DATE: 20200923
